FAERS Safety Report 9663607 (Version 1)
Quarter: 2013Q4

REPORT INFORMATION
  Report Type: Spontaneous
  Country: US (occurrence: US)
  Receive Date: 20131101
  Receipt Date: 20131101
  Transmission Date: 20140711
  Serious: No
  Sender: FDA-Public Use
  Company Number: US-ENDO PHARMACEUTICALS INC.-CLOZ20120012

PATIENT
  Sex: Male

DRUGS (3)
  1. CLONAZEPAM [Suspect]
     Indication: MUSCLE SPASMS
     Dosage: UNKNOWN
     Route: 048
  2. CLONAZEPAM [Suspect]
     Indication: MUSCULAR DYSTROPHY
  3. ALCOHOL [Suspect]
     Indication: ALCOHOL USE
     Dosage: UNKNOWN
     Route: 065

REACTIONS (2)
  - Blood alcohol increased [Unknown]
  - Potentiating drug interaction [Unknown]
